FAERS Safety Report 12684830 (Version 1)
Quarter: 2016Q3

REPORT INFORMATION
  Report Type: Spontaneous
  Country: MX (occurrence: MX)
  Receive Date: 20160825
  Receipt Date: 20160825
  Transmission Date: 20161109
  Serious: Yes (Other)
  Sender: FDA-Public Use
  Company Number: MX-GLAXOSMITHKLINE-MX2016GSK122037

PATIENT
  Sex: Female
  Weight: 72 kg

DRUGS (3)
  1. NIQUITIN [Suspect]
     Active Substance: NICOTINE
     Indication: EX-TOBACCO USER
     Dosage: UNK
     Route: 062
  2. PREDNISONA [Concomitant]
     Active Substance: PREDNISONE
  3. METFORMIN [Concomitant]
     Active Substance: METFORMIN HYDROCHLORIDE

REACTIONS (4)
  - Product availability issue [Unknown]
  - Seizure [Not Recovered/Not Resolved]
  - Tremor [Unknown]
  - Intentional product misuse [Not Recovered/Not Resolved]
